FAERS Safety Report 8804586 (Version 3)
Quarter: 2012Q4

REPORT INFORMATION
  Report Type: 
  Country: ES (occurrence: ES)
  Receive Date: 20120924
  Receipt Date: 20121107
  Transmission Date: 20130627
  Serious: No
  Sender: FDA-Public Use
  Company Number: ES-SANOFI-AVENTIS-2012SA068260

PATIENT
  Age: 37 Year
  Sex: Male
  Weight: 70 kg

DRUGS (3)
  1. RIFALDIN [Suspect]
     Indication: WOUND INFECTION
     Route: 042
     Dates: start: 20120426, end: 20120513
  2. METAMIZOLE [Suspect]
     Indication: POSTOPERATIVE PAIN
     Route: 042
     Dates: start: 20120426, end: 20120513
  3. ENANTYUM [Suspect]
     Indication: POSTOPERATIVE PAIN
     Route: 042
     Dates: start: 20120426, end: 20120513

REACTIONS (1)
  - Haemoglobin decreased [Unknown]
